FAERS Safety Report 22924828 (Version 2)
Quarter: 2023Q4

REPORT INFORMATION
  Report Type: Spontaneous
  Country: BR (occurrence: BR)
  Receive Date: 20230908
  Receipt Date: 20231108
  Transmission Date: 20240109
  Serious: Yes (Other)
  Sender: FDA-Public Use
  Company Number: BR-SAMSUNG BIOEPIS-SB-2023-23752

PATIENT
  Sex: Female

DRUGS (2)
  1. ETANERCEPT [Suspect]
     Active Substance: ETANERCEPT
     Indication: Product used for unknown indication
     Dosage: UNKNOWN
     Route: 065
     Dates: start: 2019, end: 202101
  2. ETANERCEPT [Suspect]
     Active Substance: ETANERCEPT
     Indication: Product used for unknown indication
     Dosage: UNKNOWN
     Route: 058
     Dates: start: 202303

REACTIONS (12)
  - Immunodeficiency [Unknown]
  - Symptom recurrence [Unknown]
  - Illness [Unknown]
  - Dermatitis allergic [Unknown]
  - Bite [Unknown]
  - Alopecia [Unknown]
  - Arthralgia [Unknown]
  - Muscular weakness [Unknown]
  - Spinal disorder [Unknown]
  - Therapeutic product effect incomplete [Unknown]
  - Drug ineffective [Unknown]
  - Back pain [Recovered/Resolved]
